FAERS Safety Report 9225867 (Version 1)
Quarter: 2013Q1

REPORT INFORMATION
  Report Type: Spontaneous
  Country: US (occurrence: None)
  Receive Date: 20120924
  Receipt Date: 20120924
  Transmission Date: 20140127
  Serious: Yes (Death, Hospitalization)
  Sender: FDA-Public Use
  Company Number: 2012ST000271

PATIENT
  Age: 73 Year
  Sex: Male

DRUGS (4)
  1. MATULANE CAPSULES [Suspect]
     Indication: B-CELL LYMPHOMA
     Route: 048
     Dates: start: 20120220, end: 20120223
  2. CYCLOPHOSPHAMIDE [Concomitant]
  3. ETOPOSIDE [Concomitant]
  4. PREDNISONE [Concomitant]

REACTIONS (1)
  - Disease progression [None]
